FAERS Safety Report 21311390 (Version 1)
Quarter: 2022Q3

REPORT INFORMATION
  Report Type: Spontaneous
  Country: US (occurrence: None)
  Receive Date: 20220908
  Receipt Date: 20220908
  Transmission Date: 20221027
  Serious: Yes (Hospitalization)
  Sender: FDA-Public Use
  Company Number: None

PATIENT
  Sex: Female

DRUGS (1)
  1. ICATIBANT [Suspect]
     Active Substance: ICATIBANT ACETATE
     Indication: Complement deficiency disease
     Dosage: INJECT 30 MG (ONE SYRINGE) SUBCUTANEOUSLY IN THE ABDOMINAL AREA AS NEEDED FOR HAE ATTACK. MAY REPEAT
     Route: 058
     Dates: start: 20200128

REACTIONS (2)
  - Nonspecific reaction [None]
  - Hernia [None]
